FAERS Safety Report 19278930 (Version 1)
Quarter: 2021Q2

REPORT INFORMATION
  Report Type: Spontaneous
  Country: US (occurrence: US)
  Receive Date: 20210520
  Receipt Date: 20210520
  Transmission Date: 20210717
  Serious: Yes (Other)
  Sender: FDA-Public Use
  Company Number: US-MYLANLABS-2021M1029411

PATIENT
  Age: 24 Year
  Sex: Male

DRUGS (7)
  1. VINBLASTINE [Suspect]
     Active Substance: VINBLASTINE
     Indication: XANTHOGRANULOMA
     Dosage: UNK
     Route: 065
  2. METHOTREXATE. [Suspect]
     Active Substance: METHOTREXATE
     Dosage: MAINTENANCE CHEMOTHERAPY FOR TWO WEEKS
     Route: 065
  3. PREDNISONE. [Suspect]
     Active Substance: PREDNISONE
     Indication: XANTHOGRANULOMA
     Dosage: HIGH DOSE
     Route: 065
  4. MERCAPTOPURINE. [Suspect]
     Active Substance: MERCAPTOPURINE
     Indication: XANTHOGRANULOMA
     Dosage: MAINTENANCE CHEMOTHERAPY FOR TWO WEEKS
     Route: 065
  5. LEUCOVORIN                         /00566701/ [Concomitant]
     Active Substance: LEUCOVORIN
     Indication: CHEMOTHERAPY SIDE EFFECT PROPHYLAXIS
     Route: 065
  6. METHOTREXATE. [Suspect]
     Active Substance: METHOTREXATE
     Indication: XANTHOGRANULOMA
     Dosage: UNK
     Route: 065
  7. CLADRIBINE. [Suspect]
     Active Substance: CLADRIBINE
     Indication: XANTHOGRANULOMA
     Dosage: RECEIVED 8 CYCLES
     Route: 065

REACTIONS (3)
  - Pancytopenia [Unknown]
  - Thrombocytopenia [Unknown]
  - Drug ineffective [Unknown]
